FAERS Safety Report 7903246-0 (Version None)
Quarter: 2011Q4

REPORT INFORMATION
  Report Type: 
  Country: None (occurrence: None)
  Receive Date: 20111108
  Receipt Date: 20111108
  Transmission Date: 20120403
  Serious: Yes (Other)
  Sender: FDA-Public Use
  Company Number: None

PATIENT
  Sex: Female
  Weight: 47.7 kg

DRUGS (1)
  1. MELOXICAM [Suspect]
     Indication: ARTHRALGIA
     Dosage: 7.5MG -MELOXICAM, GENERIC FOR MOBIC TWICE DAILY MOUTH
     Route: 048
     Dates: start: 20110821, end: 20110827

REACTIONS (3)
  - NAUSEA [None]
  - DIARRHOEA [None]
  - FATIGUE [None]
